FAERS Safety Report 13107251 (Version 1)
Quarter: 2017Q1

REPORT INFORMATION
  Report Type: Spontaneous
  Country: HR (occurrence: HR)
  Receive Date: 20170112
  Receipt Date: 20170112
  Transmission Date: 20170428
  Serious: Yes (Hospitalization, Other)
  Sender: FDA-Public Use
  Company Number: HR-009507513-1701HRV003789

PATIENT
  Age: 15 Year
  Sex: Female
  Weight: 56 kg

DRUGS (2)
  1. AERIUS [Suspect]
     Active Substance: DESLORATADINE
     Dosage: 45 MG, UNK
     Route: 048
     Dates: start: 20160529
  2. SINGULAIR [Suspect]
     Active Substance: MONTELUKAST SODIUM
     Dosage: 70 MG, UNK
     Route: 048
     Dates: start: 20160529

REACTIONS (3)
  - Intentional overdose [Unknown]
  - No adverse event [Unknown]
  - Suicide attempt [Unknown]

NARRATIVE: CASE EVENT DATE: 20160529
